FAERS Safety Report 5367014-9 (Version None)
Quarter: 2007Q2

REPORT INFORMATION
  Report Type: 
  Country: None (occurrence: None)
  Receive Date: 20070619
  Receipt Date: 20070619
  Transmission Date: 20071010
  Serious: Yes (Life-Threatening, Hospitalization, Disabling)
  Sender: FDA-Public Use
  Company Number: None

PATIENT
  Age: 49 Year
  Sex: Female
  Weight: 81.6475 kg

DRUGS (1)
  1. ORTHO EVRA [Suspect]
     Indication: PROGESTERONE ABNORMAL
     Dosage: 1 PATCH 1 PATCH WK TRANSDERMAL
     Route: 062
     Dates: start: 20030201, end: 20051201

REACTIONS (1)
  - CEREBRAL INFARCTION [None]
